FAERS Safety Report 7824658-X (Version None)
Quarter: 2011Q4

REPORT INFORMATION
  Report Type: 
  Country: None (occurrence: None)
  Receive Date: 20111019
  Receipt Date: 20111007
  Transmission Date: 20120403
  Serious: Yes (Other)
  Sender: FDA-Public Use
  Company Number: PHHY2011BR80544

PATIENT
  Age: 58 Year
  Sex: Female
  Weight: 88 kg

DRUGS (2)
  1. LAF237 [Suspect]
     Indication: BLOOD GLUCOSE ABNORMAL
  2. EXFORGE [Suspect]
     Indication: HYPERTENSION
     Dosage: 320/5MG

REACTIONS (11)
  - SKIN LESION [None]
  - INFECTION [None]
  - INFLAMMATION [None]
  - THYROID DISORDER [None]
  - ONYCHOMYCOSIS [None]
  - BLOOD GLUCOSE INCREASED [None]
  - DIABETIC DERMOPATHY [None]
  - PARONYCHIA [None]
  - GLYCOSYLATED HAEMOGLOBIN INCREASED [None]
  - HYPERTRIGLYCERIDAEMIA [None]
  - OEDEMA PERIPHERAL [None]
